FAERS Safety Report 6935132-7 (Version None)
Quarter: 2010Q3

REPORT INFORMATION
  Report Type: 
  Country: None (occurrence: None)
  Receive Date: 20100822
  Receipt Date: 20100813
  Transmission Date: 20110219
  Serious: Yes (Life-Threatening, Other)
  Sender: FDA-Public Use
  Company Number: PHHY2010US12679

PATIENT
  Sex: Female

DRUGS (6)
  1. ENABLEX [Suspect]
     Indication: URINARY TRACT INFECTION
     Dosage: 1 DAILY
     Route: 048
     Dates: start: 20100225, end: 20100228
  2. PREMARIN [Suspect]
  3. ANTIDEPRESSANTS [Suspect]
  4. FOSAMAX [Concomitant]
  5. LIPITOR [Concomitant]
  6. CALCIUM W/VITAMIN D NOS [Concomitant]

REACTIONS (4)
  - DYSURIA [None]
  - MICTURITION URGENCY [None]
  - SECRETION DISCHARGE [None]
  - SUICIDAL IDEATION [None]
